FAERS Safety Report 20557525 (Version 11)
Quarter: 2022Q4

REPORT INFORMATION
  Report Type: Report from Study
  Country: JP (occurrence: None)
  Receive Date: 20220307
  Receipt Date: 20221205
  Transmission Date: 20230113
  Serious: Yes (Hospitalization)
  Sender: FDA-Public Use
  Company Number: JP-ROCHE-3035245

PATIENT
  Age: 65 Year
  Sex: Male
  Weight: 89 kg

DRUGS (34)
  1. ATEZOLIZUMAB [Suspect]
     Active Substance: ATEZOLIZUMAB
     Indication: Hepatocellular carcinoma
     Dosage: ON 1/FEB/2022, MOST RECENT DOSE OF ATEZOLIZUMAB PRIOR TO SAE?ON 17/MAY/2022, HE RECEIVED THE MOST RE
     Route: 041
     Dates: start: 20210817
  2. BEVACIZUMAB [Suspect]
     Active Substance: BEVACIZUMAB
     Indication: Hepatocellular carcinoma
     Dosage: ON 01/FEB/2022, 11/JAN/2022, 28/JUN/2022 MOST RECENT DOSE ADMINISTERED PRIOR TO SAE
     Route: 042
     Dates: start: 20210817
  3. EPIRUBICIN [Suspect]
     Active Substance: EPIRUBICIN
     Indication: Hepatocellular carcinoma
     Route: 065
  4. VONOPRAZAN FUMARATE [Concomitant]
     Active Substance: VONOPRAZAN FUMARATE
     Dates: start: 20170520
  5. ECABET SODIUM [Concomitant]
     Active Substance: ECABET SODIUM
     Dates: start: 20210517
  6. JARDIANCE [Concomitant]
     Active Substance: EMPAGLIFLOZIN
     Dates: start: 20210720
  7. LEVOTHYROXINE SODIUM [Concomitant]
     Active Substance: LEVOTHYROXINE SODIUM
     Dates: start: 20220113, end: 20220201
  8. LEVOTHYROXINE SODIUM [Concomitant]
     Active Substance: LEVOTHYROXINE SODIUM
     Dates: start: 20220202, end: 20220317
  9. LEVOTHYROXINE SODIUM [Concomitant]
     Active Substance: LEVOTHYROXINE SODIUM
     Dates: start: 20220318
  10. LEVOTHYROXINE SODIUM [Concomitant]
     Active Substance: LEVOTHYROXINE SODIUM
     Dates: start: 20220406, end: 20220717
  11. LEVOTHYROXINE SODIUM [Concomitant]
     Active Substance: LEVOTHYROXINE SODIUM
     Dates: start: 20220518, end: 20220607
  12. LEVOTHYROXINE SODIUM [Concomitant]
     Active Substance: LEVOTHYROXINE SODIUM
     Dates: start: 20220608
  13. FLUMARIN (JAPAN) [Concomitant]
     Dates: start: 20220526, end: 20220526
  14. ISOTONIC SODIUM CHLORIDE SOLUTION KIT H [Concomitant]
     Dates: start: 20220526, end: 20220526
  15. ISOTONIC SODIUM CHLORIDE SOLUTION KIT H [Concomitant]
     Dates: start: 20220526, end: 20220526
  16. GENTAMICIN SULFATE [Concomitant]
     Active Substance: GENTAMICIN SULFATE
     Dates: start: 20220719
  17. CEFDITOREN PIVOXIL [Concomitant]
     Active Substance: CEFDITOREN PIVOXIL
     Dates: start: 20220719
  18. SILVER SULFADIAZINE [Concomitant]
     Active Substance: SILVER SULFADIAZINE
     Dates: start: 20220725
  19. LOXOPROFEN SODIUM [Concomitant]
     Active Substance: LOXOPROFEN SODIUM
     Dates: start: 20220725
  20. CEFACLOR [Concomitant]
     Active Substance: CEFACLOR
     Dates: start: 20220808, end: 20220812
  21. HYDROCORTISONE SODIUM PHOSPHATE [Concomitant]
     Active Substance: HYDROCORTISONE SODIUM PHOSPHATE
     Dosage: PATIENT SUBSEQUENTLY TOOK THE DRUG ON : 01/NOV/2022,02/NOV/2022,
     Dates: start: 20221031, end: 20221031
  22. HYDROCORTISONE SODIUM PHOSPHATE [Concomitant]
     Active Substance: HYDROCORTISONE SODIUM PHOSPHATE
     Dates: start: 20221031, end: 20221031
  23. HYDROCORTISONE SODIUM PHOSPHATE [Concomitant]
     Active Substance: HYDROCORTISONE SODIUM PHOSPHATE
     Dates: start: 20221102, end: 20221102
  24. HYDROCORTISONE SODIUM PHOSPHATE [Concomitant]
     Active Substance: HYDROCORTISONE SODIUM PHOSPHATE
     Dates: start: 20221101, end: 20221101
  25. HYDROCORTISONE SODIUM PHOSPHATE [Concomitant]
     Active Substance: HYDROCORTISONE SODIUM PHOSPHATE
     Dates: start: 20221108, end: 20221108
  26. HYDROCORTISONE SODIUM PHOSPHATE [Concomitant]
     Active Substance: HYDROCORTISONE SODIUM PHOSPHATE
     Dates: start: 20221109, end: 20221109
  27. HYDROCORTISONE SODIUM PHOSPHATE [Concomitant]
     Active Substance: HYDROCORTISONE SODIUM PHOSPHATE
     Dates: start: 20221109, end: 20221109
  28. ACETAMINOPHEN [Concomitant]
     Active Substance: ACETAMINOPHEN
     Dosage: 02/NOV/2022
     Dates: start: 20221101, end: 20221101
  29. ACETAMINOPHEN [Concomitant]
     Active Substance: ACETAMINOPHEN
     Dates: start: 20221102
  30. CEFMETAZOLE SODIUM [Concomitant]
     Active Substance: CEFMETAZOLE SODIUM
     Dates: start: 20221101, end: 20221102
  31. CEFMETAZOLE SODIUM [Concomitant]
     Active Substance: CEFMETAZOLE SODIUM
     Dates: start: 20221108, end: 20221108
  32. CEFMETAZOLE SODIUM [Concomitant]
     Active Substance: CEFMETAZOLE SODIUM
     Dates: start: 20221108, end: 20221109
  33. OMEPRAZOLE [Concomitant]
     Active Substance: OMEPRAZOLE
     Dates: start: 20221101, end: 20221103
  34. FLURBIPROFEN AXETIL [Concomitant]
     Active Substance: FLURBIPROFEN AXETIL
     Dates: start: 20221108, end: 20221109

REACTIONS (3)
  - Adrenocorticotropic hormone deficiency [Recovering/Resolving]
  - Prostate cancer [Recovering/Resolving]
  - Incisional hernia [Recovered/Resolved]

NARRATIVE: CASE EVENT DATE: 20220121
